FAERS Safety Report 14263996 (Version 3)
Quarter: 2021Q3

REPORT INFORMATION
  Report Type: Spontaneous
  Country: FR (occurrence: FR)
  Receive Date: 20171208
  Receipt Date: 20210910
  Transmission Date: 20211014
  Serious: Yes (Hospitalization, Other)
  Sender: FDA-Public Use
  Company Number: FR-MYLANLABS-2017M1076459

PATIENT
  Age: 42 Year
  Sex: Male

DRUGS (10)
  1. OXALIPLATIN. [Suspect]
     Active Substance: OXALIPLATIN
     Indication: OESOPHAGEAL ADENOCARCINOMA
     Dosage: 85 MG/M2, I.E. 190 MG TOTAL DOSE IN 500 ML OF 5% GLUCOSE SOLUTION
     Route: 042
  2. GLUCOSE [Concomitant]
     Active Substance: DEXTROSE
     Dosage: 500 ML, UNK
     Route: 042
  3. DEOXYGLUCOSE [Concomitant]
     Dosage: 100 MILLILITER
     Route: 042
  4. OXALIPLATIN. [Suspect]
     Active Substance: OXALIPLATIN
     Indication: METASTASES TO LIVER
     Dosage: UNK, CYCLE
     Route: 042
  5. FLUOROURACIL. [Suspect]
     Active Substance: FLUOROURACIL
     Indication: METASTASES TO LIVER
     Dosage: 920 MG,QCY, 3 CYCLICAL
     Route: 040
  6. FOLINIC ACID [Concomitant]
     Active Substance: LEUCOVORIN
     Indication: GASTROINTESTINAL CANCER METASTATIC
     Dosage: UNK
  7. SODIUM CHLORIDE. [Concomitant]
     Active Substance: SODIUM CHLORIDE
     Indication: PRODUCT USED FOR UNKNOWN INDICATION
     Dosage: 140 ML, UNK
     Route: 042
  8. GLUCOSE [Concomitant]
     Active Substance: DEXTROSE
     Indication: PRODUCT USED FOR UNKNOWN INDICATION
     Dosage: 100 ML, UNK
     Route: 040
  9. FLUOROURACIL. [Suspect]
     Active Substance: FLUOROURACIL
     Indication: OESOPHAGEAL ADENOCARCINOMA
     Dosage: 5500 MG,QCY, 3 CYCLICAL
     Route: 042
  10. FOLINIC ACID [Concomitant]
     Active Substance: LEUCOVORIN
     Indication: METASTASES TO LIVER
     Dosage: UNK UNK,QCY
     Route: 042

REACTIONS (9)
  - Toxicity to various agents [Unknown]
  - Chest discomfort [Unknown]
  - Bronchospasm [Recovered/Resolved]
  - Dysphonia [Recovered/Resolved]
  - Cardiotoxicity [Recovered/Resolved]
  - Vocal cord paralysis [Unknown]
  - Cough [Recovered/Resolved]
  - Pain [Recovered/Resolved]
  - Administration site extravasation [Recovered/Resolved]
